FAERS Safety Report 7629742-1 (Version None)
Quarter: 2011Q3

REPORT INFORMATION
  Report Type: 
  Country: None (occurrence: None)
  Receive Date: 20110722
  Receipt Date: 20110721
  Transmission Date: 20111222
  Serious: No
  Sender: FDA-Public Use
  Company Number: US-PFIZER INC-2011166353

PATIENT
  Sex: Male
  Weight: 99.773 kg

DRUGS (3)
  1. SIMVASTATIN [Concomitant]
     Dosage: 20 MG, UNK
  2. LISINOPRIL [Concomitant]
     Dosage: 10 MG, UNK
  3. VIAGRA [Suspect]
     Indication: ERECTILE DYSFUNCTION
     Dosage: 50 MG, AS NEEDED
     Route: 048

REACTIONS (3)
  - DRUG INEFFECTIVE [None]
  - ABDOMINAL DISCOMFORT [None]
  - ABDOMINAL PAIN [None]
